FAERS Safety Report 7624713-3 (Version None)
Quarter: 2011Q3

REPORT INFORMATION
  Report Type: 
  Country: None (occurrence: None)
  Receive Date: 20110720
  Receipt Date: 20110713
  Transmission Date: 20111222
  Serious: Yes (Hospitalization)
  Sender: FDA-Public Use
  Company Number: PT-BAYER-2011-061251

PATIENT
  Age: 65 Year
  Sex: Female

DRUGS (2)
  1. CIPROFLOXACIN HYDROCHLORIDE [Suspect]
     Indication: LOCALISED INFECTION
     Dosage: UNK
  2. CIPROFLOXACIN HYDROCHLORIDE [Suspect]
     Dosage: UNK
     Route: 048

REACTIONS (1)
  - DRUG ERUPTION [None]
